FAERS Safety Report 9900128 (Version 8)
Quarter: 2015Q3

REPORT INFORMATION
  Report Type: Report from Study
  Country: ES (occurrence: ES)
  Receive Date: 20140214
  Receipt Date: 20150717
  Transmission Date: 20151125
  Serious: Yes (Death, Life-Threatening, Hospitalization)
  Sender: FDA-Public Use
  Company Number: ES-MERCK-1402ESP001859

PATIENT
  Age: 50 Year
  Sex: Male
  Weight: 80 kg

DRUGS (2)
  1. PEGINTERFERON ALFA-2B [Suspect]
     Active Substance: PEGINTERFERON ALFA-2B
     Indication: CHRONIC HEPATITIS C
     Dosage: 1.5 MICROGRAM PER KILOGRAM, QW
     Route: 042
     Dates: start: 20130920, end: 20131021
  2. COPEGUS [Suspect]
     Active Substance: RIBAVIRIN
     Indication: CHRONIC HEPATITIS C
     Dosage: 1000 MG, QD
     Route: 048
     Dates: start: 20130920, end: 20131021

REACTIONS (5)
  - Multi-organ failure [Fatal]
  - Muscle abscess [Fatal]
  - Septic shock [Fatal]
  - Respiratory failure [Fatal]
  - Thrombocytopenia [Unknown]

NARRATIVE: CASE EVENT DATE: 20131018
